FAERS Safety Report 10180291 (Version 1)
Quarter: 2014Q2

REPORT INFORMATION
  Report Type: Spontaneous
  Country: US (occurrence: US)
  Receive Date: 20140519
  Receipt Date: 20140519
  Transmission Date: 20141212
  Serious: No
  Sender: FDA-Public Use
  Company Number: US-AMGEN INC.-USASP2013082771

PATIENT
  Age: 78 Year
  Sex: Female

DRUGS (2)
  1. PROLIA [Suspect]
     Indication: OSTEOPOROSIS POSTMENOPAUSAL
     Dosage: 60 MG, Q6MO
     Route: 065
     Dates: start: 20121010
  2. PROLIA [Suspect]
     Dosage: UNK UNK, Q6MO
     Route: 065

REACTIONS (4)
  - Gait disturbance [Recovered/Resolved]
  - Tremor [Recovered/Resolved]
  - Exercise tolerance decreased [Recovered/Resolved]
  - Pain in extremity [Recovered/Resolved]
